FAERS Safety Report 8274716-3 (Version None)
Quarter: 2012Q1

REPORT INFORMATION
  Report Type: 
  Country: None (occurrence: None)
  Receive Date: 20120312
  Receipt Date: 20111004
  Transmission Date: 20120608
  Serious: No
  Sender: FDA-Public Use
  Company Number: 2011SP047020

PATIENT
  Age: 48 Year
  Sex: Male

DRUGS (4)
  1. SAPHRIS [Suspect]
     Indication: GENERALISED ANXIETY DISORDER
     Dosage: 5 MG;QD;SL
     Route: 060
     Dates: start: 20101001, end: 20111101
  2. SAPHRIS [Suspect]
     Indication: DEPRESSION
     Dosage: 5 MG;QD;SL
     Route: 060
     Dates: start: 20101001, end: 20111101
  3. LORAZEPAM [Concomitant]
  4. PAXIL [Concomitant]

REACTIONS (6)
  - TARDIVE DYSKINESIA [None]
  - LETHARGY [None]
  - DRUG EFFECT DECREASED [None]
  - INAPPROPRIATE SCHEDULE OF DRUG ADMINISTRATION [None]
  - SURGERY [None]
  - OFF LABEL USE [None]
